FAERS Safety Report 17566901 (Version 1)
Quarter: 2020Q1

REPORT INFORMATION
  Report Type: Spontaneous
  Country: GB (occurrence: GB)
  Receive Date: 20200320
  Receipt Date: 20200320
  Transmission Date: 20200409
  Serious: Yes (Hospitalization)
  Sender: FDA-Public Use
  Company Number: GB-MYLANLABS-2020M1030223

PATIENT
  Age: 60 Year
  Sex: Male

DRUGS (8)
  1. LANSOPRAZOLE. [Concomitant]
     Active Substance: LANSOPRAZOLE
     Dosage: 30 MILLIGRAM, QD,MORNING
     Route: 048
  2. BENDROFLUMETHIAZIDE [Concomitant]
     Active Substance: BENDROFLUMETHIAZIDE
     Dosage: 2.5 MILLIGRAM, QD,MORNING
     Route: 048
  3. BISOPROLOL [Concomitant]
     Active Substance: BISOPROLOL
     Dosage: 5 MILLIGRAM, QD,MORNING
     Route: 048
  4. MEROPENEM. [Suspect]
     Active Substance: MEROPENEM
     Indication: ENDOCARDITIS
     Dosage: 3 GRAM, QD
     Route: 041
     Dates: start: 20191216, end: 20191216
  5. ATORVASTATIN [Concomitant]
     Active Substance: ATORVASTATIN
     Dosage: 80 MILLIGRAM, QD,NIGHT
     Route: 048
  6. WARFARIN [Suspect]
     Active Substance: WARFARIN
     Dosage: 4 MILLIGRAM, QD
     Route: 048
     Dates: end: 20191201
  7. RAMIPRIL. [Concomitant]
     Active Substance: RAMIPRIL
     Dosage: 5 MILLIGRAM, QD,MORNING
     Route: 048
  8. AMLODIPINE [Concomitant]
     Active Substance: AMLODIPINE BESYLATE
     Dosage: 5 MILLIGRAM, QD,MORNING
     Route: 048

REACTIONS (5)
  - Confusional state [Unknown]
  - Septic embolus [Unknown]
  - Pneumonia [Unknown]
  - Subarachnoid haemorrhage [Recovered/Resolved with Sequelae]
  - Rash [Recovered/Resolved]

NARRATIVE: CASE EVENT DATE: 20191201
